FAERS Safety Report 9849933 (Version 1)
Quarter: 2014Q1

REPORT INFORMATION
  Report Type: Spontaneous
  Country: US (occurrence: US)
  Receive Date: 20140128
  Receipt Date: 20140128
  Transmission Date: 20141002
  Serious: No
  Sender: FDA-Public Use
  Company Number: US-009507513-1312USA000734

PATIENT
  Age: 74 Year
  Sex: Female
  Weight: 65.31 kg

DRUGS (6)
  1. OXYTROL FOR WOMEN [Suspect]
     Indication: POLLAKIURIA
     Dosage: UNK, UNKNOWN
     Route: 062
     Dates: start: 20140115
  2. OXYTROL FOR WOMEN [Suspect]
     Dosage: UNK, UNKNOWN
     Route: 062
     Dates: start: 20140115
  3. SPIRONOLACTONE [Concomitant]
     Indication: BLOOD PRESSURE ABNORMAL
     Dosage: 25 MG, UNKNOWN
  4. CLOBETASOL PROPIONATE [Concomitant]
     Indication: ECZEMA
     Dosage: UNK, UNKNOWN
  5. PREMARIN [Concomitant]
     Indication: HOT FLUSH
     Dosage: UNK, UNKNOWN
  6. VITAMIN D (UNSPECIFIED) [Concomitant]
     Indication: PRODUCT USED FOR UNKNOWN INDICATION
     Dosage: UNK, UNKNOWN

REACTIONS (2)
  - Hot flush [Recovered/Resolved]
  - Hyperhidrosis [Unknown]
